FAERS Safety Report 22637435 (Version 2)
Quarter: 2023Q4

REPORT INFORMATION
  Report Type: Spontaneous
  Country: JP (occurrence: JP)
  Receive Date: 20230626
  Receipt Date: 20231128
  Transmission Date: 20240110
  Serious: Yes (Other)
  Sender: FDA-Public Use
  Company Number: JP-TAKEDA-2023TJP007952

PATIENT

DRUGS (1)
  1. ZEJULA [Suspect]
     Active Substance: NIRAPARIB
     Indication: Ovarian cancer recurrent
     Dosage: 200 MG, QD
     Route: 048
     Dates: start: 20230412, end: 20230517

REACTIONS (1)
  - Ovarian cancer recurrent [Recovered/Resolved]

NARRATIVE: CASE EVENT DATE: 20230517
